FAERS Safety Report 6717335-X (Version None)
Quarter: 2010Q2

REPORT INFORMATION
  Report Type: 
  Country: None (occurrence: None)
  Receive Date: 20100510
  Receipt Date: 20100504
  Transmission Date: 20101027
  Serious: Yes (Other)
  Sender: FDA-Public Use
  Company Number: BR-ASTRAZENECA-2010SE20360

PATIENT
  Age: 42 Year
  Sex: Female
  Weight: 85 kg

DRUGS (3)
  1. SYMBICORT [Suspect]
     Indication: ASTHMA
     Dosage: 320/9 UG TWO TIMES A DAY
     Route: 055
     Dates: start: 20040101, end: 20100301
  2. METFORMIN HYDROCHLORIDE [Concomitant]
     Indication: HEPATIC STEATOSIS
     Route: 048
     Dates: start: 20070101
  3. AMFEPRAMONE [Concomitant]
     Indication: WEIGHT LOSS DIET
     Route: 048
     Dates: start: 20070101, end: 20100301

REACTIONS (3)
  - CHEST DISCOMFORT [None]
  - DRUG DOSE OMISSION [None]
  - DYSPNOEA [None]
